FAERS Safety Report 5745641-4 (Version None)
Quarter: 2008Q2

REPORT INFORMATION
  Report Type: 
  Country: None (occurrence: None)
  Receive Date: 20080521
  Receipt Date: 20080508
  Transmission Date: 20081010
  Serious: Yes (Other)
  Sender: FDA-Public Use
  Company Number: PHHY2008JP06075

PATIENT

DRUGS (2)
  1. ANTIBIOTICS [Concomitant]
  2. GLEEVEC [Suspect]
     Indication: GASTROINTESTINAL STROMAL TUMOUR
     Route: 048

REACTIONS (4)
  - ABSCESS DRAINAGE [None]
  - DRUG RESISTANCE [None]
  - HEPATIC INFECTION [None]
  - LIVER ABSCESS [None]
